FAERS Safety Report 7324784-8 (Version None)
Quarter: 2011Q1

REPORT INFORMATION
  Report Type: 
  Country: None (occurrence: None)
  Receive Date: 20110218
  Receipt Date: 20110204
  Transmission Date: 20110831
  Serious: Yes (Other)
  Sender: FDA-Public Use
  Company Number: 2011MA000630

PATIENT
  Age: 28 Year
  Sex: Female

DRUGS (24)
  1. CHONDROITIN (NO PREF. NAME) [Suspect]
     Indication: PRODUCT USED FOR UNKNOWN INDICATION
     Dosage: 400 MG, PO
     Route: 048
     Dates: start: 20101125, end: 20101126
  2. VITAMIN D [Suspect]
     Indication: PRODUCT USED FOR UNKNOWN INDICATION
     Dosage: 400 IU, PO
     Route: 048
     Dates: start: 20101125, end: 20101126
  3. NYSTATIN [Concomitant]
  4. FOLIC ACID [Suspect]
     Indication: PRODUCT USED FOR UNKNOWN INDICATION
     Dosage: 400 MG, PO
     Route: 048
     Dates: start: 20101125, end: 20101126
  5. CALCIUM HYDROGEN PHOSPHATE (NO PREF. NAME) [Suspect]
     Indication: PRODUCT USED FOR UNKNOWN INDICATION
     Dosage: PO
     Route: 048
     Dates: start: 20101125, end: 20101126
  6. TITANIUM DIOXIDE (TITANIUM DIOXIDE) [Suspect]
     Indication: PRODUCT USED FOR UNKNOWN INDICATION
     Dosage: PO
     Route: 048
     Dates: start: 20101125, end: 20101126
  7. GINGER (ZINGIBER OFFICINALE RHIZOME) [Suspect]
     Indication: PRODUCT USED FOR UNKNOWN INDICATION
     Dosage: 80 MG, PO
     Route: 048
     Dates: start: 20101125, end: 20101126
  8. TOCOPHEROL (TOCOPHEROL) [Suspect]
     Indication: PRODUCT USED FOR UNKNOWN INDICATION
     Dosage: 40 MG, PO
     Route: 048
     Dates: start: 20101125, end: 20101126
  9. ASCORBIC ACID [Suspect]
     Indication: PRODUCT USED FOR UNKNOWN INDICATION
     Dosage: 60 MG, PO
     Route: 048
     Dates: start: 20101125, end: 20101126
  10. COPPER (COPPER) [Suspect]
     Indication: PRODUCT USED FOR UNKNOWN INDICATION
     Dosage: 1000 MCG, PO
     Route: 048
     Dates: start: 20101125, end: 20101126
  11. SELENIUM (SELENIUM) [Suspect]
     Indication: PRODUCT USED FOR UNKNOWN INDICATION
     Dosage: 120 MCG; PO
     Route: 048
     Dates: start: 20101125, end: 20101126
  12. POLYVINYLPYRROLIDONE (NO PREF. NAME) [Suspect]
     Indication: PRODUCT USED FOR UNKNOWN INDICATION
     Dosage: PO
     Route: 048
     Dates: start: 20101125, end: 20101126
  13. MANGANESE (MANGANESE) [Suspect]
     Indication: PRODUCT USED FOR UNKNOWN INDICATION
     Dosage: 4 MG, PO
     Route: 048
     Dates: start: 20101125, end: 20101126
  14. SILICON DIOXIDE (NO PREF. NAME) [Suspect]
     Indication: PRODUCT USED FOR UNKNOWN INDICATION
     Dosage: PO
     Route: 048
     Dates: start: 20101125, end: 20101126
  15. MAGNESIUM SILICATE (NO PREF. NAME) [Suspect]
     Indication: PRODUCT USED FOR UNKNOWN INDICATION
     Dosage: PO
     Route: 048
     Dates: start: 20101125, end: 20101126
  16. MAGNESIUM STEARATE (MAGNESIUM STEARATE) [Suspect]
     Indication: PRODUCT USED FOR UNKNOWN INDICATION
     Dosage: PO
     Route: 048
     Dates: start: 20101125, end: 20101126
  17. SEROXAT [Concomitant]
  18. ZINC OXIDE OINTMENT USP (ALPHARMA) (ZINC OXIDE) [Suspect]
     Indication: PRODUCT USED FOR UNKNOWN INDICATION
     Dosage: 10 MCG, PO
     Route: 048
     Dates: start: 20101125, end: 20101126
  19. SODIUM SELENITE (SODIUM SELENITE) [Suspect]
     Indication: PRODUCT USED FOR UNKNOWN INDICATION
     Dosage: PO
     Route: 048
     Dates: start: 20101126, end: 20101126
  20. COPPER CHLOROPHYLLIN (NO PREF. NAME) [Suspect]
     Indication: PRODUCT USED FOR UNKNOWN INDICATION
     Dosage: PO
     Route: 048
     Dates: start: 20101125, end: 20101126
  21. MICROCRYSTALLINE CELLULOSE (NO PREF. NAME) [Suspect]
     Indication: PRODUCT USED FOR UNKNOWN INDICATION
     Dosage: PO
     Route: 048
     Dates: start: 20101125, end: 20101126
  22. HYDROXYPROPYL METHYLCELLULOSE (HYPROMELLOSE) [Suspect]
     Indication: PRODUCT USED FOR UNKNOWN INDICATION
     Dosage: PO
     Route: 048
     Dates: start: 20101125, end: 20101126
  23. CYANOCOBALAMIN [Suspect]
     Indication: PRODUCT USED FOR UNKNOWN INDICATION
     Dosage: 20 MCG, PO
     Route: 048
     Dates: start: 20101125, end: 20101126
  24. GLUCOSAMINE (GLUCOSAMINE) [Suspect]
     Indication: PRODUCT USED FOR UNKNOWN INDICATION
     Dosage: 1000 MG, PO
     Route: 048
     Dates: start: 20101125, end: 20101126

REACTIONS (2)
  - ABDOMINAL PAIN UPPER [None]
  - VOMITING [None]
